FAERS Safety Report 8062477 (Version 4)
Quarter: 2014Q3

REPORT INFORMATION
  Report Type: Spontaneous
  Country: JP (occurrence: JP)
  Receive Date: 20110801
  Receipt Date: 20140827
  Transmission Date: 20150326
  Serious: Yes (Life-Threatening, Hospitalization, Other)
  Sender: FDA-Public Use
  Company Number: JP-SANOFI-AVENTIS-2011SA047136

PATIENT
  Age: 73 Year
  Sex: Male
  Weight: 167 kg

DRUGS (18)
  1. FLUOROURACIL. [Concomitant]
     Active Substance: FLUOROURACIL
     Indication: COLON CANCER
     Dosage: DOSE: 894 MG/BODY D1-2, TOTAL 3 CYCLES
     Route: 041
     Dates: start: 20080723
  2. NEUTROGIN [Concomitant]
     Active Substance: LENOGRASTIM
     Dates: start: 20080811, end: 20080811
  3. CALCIUM LEVOFOLINATE [Concomitant]
     Active Substance: LEVOLEUCOVORIN CALCIUM
     Indication: COLON CANCER
     Dosage: DOSE: 149 MG/BODY
     Route: 041
     Dates: start: 20080723
  4. ELASPOL [Concomitant]
     Active Substance: SIVELESTAT SODIUM
     Dates: start: 20080905, end: 20080907
  5. DECADRON [Concomitant]
     Active Substance: DEXAMETHASONE
     Dosage: 2
  6. ELPLAT [Suspect]
     Active Substance: OXALIPLATIN
     Indication: COLON CANCER
     Dosage: TOTAL 3 CYCLES, DOSE 126.65MG/BODY
     Route: 041
     Dates: start: 20080723, end: 20080723
  7. FLUOROURACIL. [Concomitant]
     Active Substance: FLUOROURACIL
     Indication: COLON CANCER
     Dosage: TOTAL 3 CYCLES, DOSE: 596 MG/BODY
     Route: 040
     Dates: start: 20080723
  8. SOLU-MEDROL [Concomitant]
     Active Substance: METHYLPREDNISOLONE SODIUM SUCCINATE
     Dates: start: 20080905, end: 20080909
  9. FLUOROURACIL. [Concomitant]
     Active Substance: FLUOROURACIL
     Indication: COLON CANCER
     Route: 041
     Dates: start: 20080905
  10. AVASTIN [Concomitant]
     Active Substance: BEVACIZUMAB
     Indication: COLON CANCER
     Dosage: DOSE: 229.5 MG/BODY
     Route: 041
     Dates: start: 20080723, end: 20080903
  11. KYTRIL [Concomitant]
     Active Substance: GRANISETRON HYDROCHLORIDE
     Dates: start: 20080723, end: 20080903
  12. ELPLAT [Suspect]
     Active Substance: OXALIPLATIN
     Indication: COLON CANCER
     Dosage: DOSE: 126.65MG/BODY
     Route: 041
     Dates: start: 20080806, end: 20080806
  13. ELPLAT [Suspect]
     Active Substance: OXALIPLATIN
     Indication: COLON CANCER
     Dosage: DOSE: 97 MG/BODY
     Route: 041
     Dates: start: 20080903, end: 20080903
  14. CALCIUM LEVOFOLINATE [Concomitant]
     Active Substance: LEVOLEUCOVORIN CALCIUM
     Indication: COLON CANCER
     Dosage: DOSE: 150 MG/BODY
     Route: 041
     Dates: start: 20080903, end: 20080904
  15. PENTCILLIN [Concomitant]
     Active Substance: PIPERACILLIN SODIUM
     Dates: start: 20080905, end: 20080905
  16. MAXIPIME [Concomitant]
     Active Substance: CEFEPIME HYDROCHLORIDE
     Dates: start: 20080906, end: 20080908
  17. FLUOROURACIL. [Concomitant]
     Active Substance: FLUOROURACIL
     Indication: COLON CANCER
     Dosage: DOSE: 475 MG/BODY
     Route: 040
     Dates: start: 20080903
  18. FLUOROURACIL. [Concomitant]
     Active Substance: FLUOROURACIL
     Indication: COLON CANCER
     Dosage: DOSE: 700 MG/BODY D1-2
     Route: 041
     Dates: start: 20080903

REACTIONS (5)
  - Type IV hypersensitivity reaction [Recovering/Resolving]
  - Acute respiratory distress syndrome [Recovering/Resolving]
  - Neutrophil count decreased [Recovered/Resolved]
  - White blood cell count decreased [Unknown]
  - Haemoptysis [Recovering/Resolving]

NARRATIVE: CASE EVENT DATE: 20080809
